FAERS Safety Report 5226080-1 (Version None)
Quarter: 2007Q1

REPORT INFORMATION
  Report Type: 
  Country: None (occurrence: None)
  Receive Date: 20070129
  Receipt Date: 20070112
  Transmission Date: 20070707
  Serious: Yes (Other)
  Sender: FDA-Public Use
  Company Number: ACO_0311_2007

PATIENT

DRUGS (2)
  1. TIZANIDINE HCL [Suspect]
     Dosage: DF
  2. CIPROFLOXACIN [Suspect]
     Dosage: DF

REACTIONS (6)
  - BODY TEMPERATURE DECREASED [None]
  - CONFUSIONAL STATE [None]
  - DRUG INTERACTION [None]
  - HEART RATE DECREASED [None]
  - HYPOTENSION [None]
  - SOMNOLENCE [None]
